FAERS Safety Report 20977019 (Version 1)
Quarter: 2022Q2

REPORT INFORMATION
  Report Type: Report from Study
  Country: US (occurrence: US)
  Receive Date: 20220617
  Receipt Date: 20220617
  Transmission Date: 20220721
  Serious: Yes (Other)
  Sender: FDA-Public Use
  Company Number: US-JNJFOC-20220622415

PATIENT
  Age: 70 Year
  Sex: Female
  Weight: 68.1 kg

DRUGS (1)
  1. IBRUTINIB [Suspect]
     Active Substance: IBRUTINIB
     Indication: Waldenstrom^s macroglobulinaemia
     Route: 048
     Dates: start: 20161001, end: 20170115

REACTIONS (2)
  - Drug-induced liver injury [Recovered/Resolved]
  - Blood immunoglobulin M increased [Recovered/Resolved]

NARRATIVE: CASE EVENT DATE: 20170115
